FAERS Safety Report 20334934 (Version 1)
Quarter: 2022Q1

REPORT INFORMATION
  Report Type: Spontaneous
  Country: US (occurrence: US)
  Receive Date: 20220114
  Receipt Date: 20220114
  Transmission Date: 20220424
  Serious: No
  Sender: FDA-Public Use
  Company Number: US-BIOVITRUM-2022US00414

PATIENT
  Sex: Female
  Weight: 8 kg

DRUGS (1)
  1. SYNAGIS [Suspect]
     Active Substance: PALIVIZUMAB
     Indication: Premature baby
     Dosage: 100MG/1ML VL LIQUID + 50MG/0.5ML VL LIQUID
     Route: 030
     Dates: start: 20210118

REACTIONS (1)
  - COVID-19 [Recovering/Resolving]
